FAERS Safety Report 6441938-3 (Version None)
Quarter: 2009Q4

REPORT INFORMATION
  Report Type: 
  Country: None (occurrence: None)
  Receive Date: 20091116
  Receipt Date: 20091104
  Transmission Date: 20100525
  Serious: Yes (Other)
  Sender: FDA-Public Use
  Company Number: JP-PFIZER INC-2009295060

PATIENT
  Sex: Male

DRUGS (2)
  1. ZOLOFT [Suspect]
     Indication: DEPRESSION
     Dates: start: 20091021
  2. PAXIL [Concomitant]
     Indication: DEPRESSION

REACTIONS (2)
  - BLOOD PRESSURE INCREASED [None]
  - EYE DISORDER [None]
